FAERS Safety Report 23040836 (Version 3)
Quarter: 2023Q4

REPORT INFORMATION
  Report Type: Spontaneous
  Country: JP (occurrence: JP)
  Receive Date: 20231006
  Receipt Date: 20231101
  Transmission Date: 20240110
  Serious: Yes (Other)
  Sender: FDA-Public Use
  Company Number: JP-MALLINCKRODT-MNK202304852

PATIENT
  Age: 1 Day
  Weight: 1 kg

DRUGS (6)
  1. NITRIC OXIDE [Suspect]
     Active Substance: NITRIC OXIDE
     Indication: Neonatal pulmonary hypertension
     Dosage: 20PPM (RESPIRATORY)
     Route: 055
  2. NITRIC OXIDE [Suspect]
     Active Substance: NITRIC OXIDE
     Dosage: RESPIRATORY (RESTARTED)
     Route: 055
  3. CARBIMAZOLE [Concomitant]
     Active Substance: CARBIMAZOLE
     Indication: Product used for unknown indication
     Dosage: UNKNOWN
  4. IMMUNE GLOBULIN NOS [Concomitant]
     Active Substance: IMMUNE GLOBULIN NOS
     Indication: Product used for unknown indication
     Dosage: UNKNOWN
  5. AMPICILLIN [Concomitant]
     Active Substance: AMPICILLIN
     Dosage: UNKNOWN
  6. AMIKACIN [Concomitant]
     Active Substance: AMIKACIN
     Indication: Product used for unknown indication
     Dosage: UNKNOWN

REACTIONS (6)
  - Neonatal intestinal perforation [Unknown]
  - Patent ductus arteriosus [Recovered/Resolved]
  - Encephalopathy [Unknown]
  - Hydrocephalus [Unknown]
  - Intraventricular haemorrhage neonatal [Unknown]
  - Product use issue [Unknown]
